FAERS Safety Report 5312710-2 (Version None)
Quarter: 2007Q2

REPORT INFORMATION
  Report Type: 
  Country: None (occurrence: None)
  Receive Date: 20070430
  Receipt Date: 20070418
  Transmission Date: 20071010
  Serious: Yes (Hospitalization)
  Sender: FDA-Public Use
  Company Number: PHRM2007FR00593

PATIENT
  Age: 26 Year
  Sex: Female

DRUGS (1)
  1. VISKEN [Suspect]
     Indication: ARRHYTHMIA SUPRAVENTRICULAR
     Dosage: 1 DF, QD
     Route: 048

REACTIONS (4)
  - ABORTION SPONTANEOUS [None]
  - BENIGN HYDATIDIFORM MOLE [None]
  - DRUG EXPOSURE DURING PREGNANCY [None]
  - SYSTEMIC LUPUS ERYTHEMATOSUS [None]
